FAERS Safety Report 18208804 (Version 1)
Quarter: 2020Q3

REPORT INFORMATION
  Report Type: Report from Study
  Country: US (occurrence: US)
  Receive Date: 20200828
  Receipt Date: 20200828
  Transmission Date: 20201103
  Serious: Yes (Other)
  Sender: FDA-Public Use
  Company Number: US-ASTRAZENECA-2020SF07870

PATIENT
  Sex: Female

DRUGS (4)
  1. DAILY VITE [Concomitant]
     Active Substance: VITAMINS
  2. BENGAY ULTRA STRENGTH [Concomitant]
     Active Substance: METHYL SALICYLATE
  3. OCUVITE WITH LUTEIN [Concomitant]
  4. TAGRISSO [Suspect]
     Active Substance: OSIMERTINIB
     Indication: LUNG NEOPLASM MALIGNANT
     Route: 048
     Dates: start: 20190702

REACTIONS (8)
  - Rash [Recovered/Resolved]
  - Nail disorder [Unknown]
  - Cardiomegaly [Unknown]
  - Onychalgia [Unknown]
  - Cardiac discomfort [Unknown]
  - Lung disorder [Unknown]
  - Pruritus [Unknown]
  - Dyspnoea [Unknown]
